FAERS Safety Report 20154303 (Version 2)
Quarter: 2021Q4

REPORT INFORMATION
  Report Type: Other
  Country: DE (occurrence: DE)
  Receive Date: 20211207
  Receipt Date: 20211222
  Transmission Date: 20220303
  Serious: Yes (Other)
  Sender: FDA-Public Use
  Company Number: DE-CELLTRION INC.-2021DE016248

PATIENT

DRUGS (16)
  1. TRASTUZUMAB [Suspect]
     Active Substance: TRASTUZUMAB
     Indication: Breast cancer
     Dosage: NEOADJUVANT, DOSE 1 (EVERY 3 WEEKS; ADDITIONAL INFO ON DRUG: NOT AVAILABLE)
     Route: 065
     Dates: start: 201911, end: 202002
  2. TRASTUZUMAB [Suspect]
     Active Substance: TRASTUZUMAB
     Indication: Off label use
     Dosage: Q3W
     Dates: start: 202002
  3. TRASTUZUMAB [Suspect]
     Active Substance: TRASTUZUMAB
     Dosage: Q3W
     Dates: start: 201911, end: 202002
  4. TRASTUZUMAB [Suspect]
     Active Substance: TRASTUZUMAB
     Dosage: COMPLETION OF TRASTUZUMAB AD 1 YEAR, DOSE 1 (EVERY 3 WEEKS; ADDITIONAL INFO ON DRUG: NOT AVAILABLE)
     Route: 065
     Dates: start: 202002
  5. TRASTUZUMAB [Suspect]
     Active Substance: TRASTUZUMAB
     Dosage: 4X T-DM1 Q3W, DOSE 1 (ADDITIONAL INFO ON DRUG: NOT AVAILABLE)
     Route: 065
     Dates: start: 20201111
  6. PACLITAXEL [Suspect]
     Active Substance: PACLITAXEL
     Indication: Breast cancer
     Dosage: 12XPAC
  7. TAMOXIFEN [Suspect]
     Active Substance: TAMOXIFEN
     Indication: Breast cancer
     Dosage: ADJ (ADDITIONAL INFORMATION ON DRUG: NOT AVAILABLE)
     Route: 065
  8. PERTUZUMAB [Suspect]
     Active Substance: PERTUZUMAB
     Indication: Breast cancer
     Dosage: NEOADJUVANT
  9. PERTUZUMAB [Suspect]
     Active Substance: PERTUZUMAB
     Dosage: Q3W, DOSE 1 (ADDITIONAL INFO ON DRUG: NOT AVAILABLE)
     Route: 065
     Dates: start: 201911, end: 202002
  10. PERTUZUMAB [Suspect]
     Active Substance: PERTUZUMAB
     Dosage: Q3W, DOSE 1 (ADDITIONAL INFO ON DRUG: NOT AVAILABLE)
     Route: 065
     Dates: start: 202002
  11. EPIRUBICIN HYDROCHLORIDE [Suspect]
     Active Substance: EPIRUBICIN HYDROCHLORIDE
     Indication: Breast cancer
     Dosage: NEOADJUVANT 4X ECDD (ADDITIONAL INFO ON DRUG: NOT AVAILABLE)
     Route: 065
  12. CYCLOPHOSPHAMIDE [Suspect]
     Active Substance: CYCLOPHOSPHAMIDE
     Indication: Breast cancer
     Dosage: NEOADJUVANT 4X ECDD (ADDITIONAL INFORMATION ON DRUG: NOT AVAILABLE)
     Route: 065
  13. CYCLOPHOSPHAMIDE [Suspect]
     Active Substance: CYCLOPHOSPHAMIDE
     Indication: Ovarian cancer
     Dosage: ADDITIONAL INFORMATION ON DRUG: NOT AVAILABLE
  14. CYCLOPHOSPHAMIDE [Suspect]
     Active Substance: CYCLOPHOSPHAMIDE
     Indication: Leukaemia
     Dosage: ADDITIONAL INFORMATION ON DRUG: NOT AVAILABLE
  15. ADO-TRASTUZUMAB EMTANSINE [Suspect]
     Active Substance: ADO-TRASTUZUMAB EMTANSINE
     Indication: Product used for unknown indication
     Dosage: 4X T-DM1 Q3W
     Dates: start: 20201111
  16. ABRAXANE [Suspect]
     Active Substance: PACLITAXEL
     Indication: Breast cancer
     Dosage: 12XPAC, 10X NAB-PAC WEEKLY (DOSE FORM: 124) (ADDITIONAL INFORMATION ON DRUG: NOT AVAILABLE)
     Route: 065
     Dates: start: 201911, end: 202002

REACTIONS (4)
  - Breast cancer [Unknown]
  - Polyneuropathy [Unknown]
  - Neoplasm progression [Unknown]
  - Off label use [Unknown]

NARRATIVE: CASE EVENT DATE: 20191101
